FAERS Safety Report 8377469-3 (Version None)
Quarter: 2012Q2

REPORT INFORMATION
  Report Type: 
  Country: None (occurrence: None)
  Receive Date: 20120522
  Receipt Date: 20110609
  Transmission Date: 20120825
  Serious: No
  Sender: FDA-Public Use
  Company Number: US-ASTRAZENECA-2011SE11461

PATIENT
  Age: 72 Year
  Sex: Female

DRUGS (6)
  1. COUMADIN [Concomitant]
  2. PRILOSEC [Suspect]
     Route: 048
  3. TOPROL-XL [Concomitant]
  4. TOPROL-XL [Suspect]
     Route: 048
  5. PRILOSEC OTC [Suspect]
     Route: 048
  6. LIPITOR [Concomitant]

REACTIONS (3)
  - DRUG PRESCRIBING ERROR [None]
  - ERUCTATION [None]
  - DRUG INEFFECTIVE [None]
